FAERS Safety Report 20556831 (Version 1)
Quarter: 2022Q1

REPORT INFORMATION
  Report Type: Spontaneous
  Country: JP (occurrence: JP)
  Receive Date: 20220307
  Receipt Date: 20220307
  Transmission Date: 20220423
  Serious: Yes (Other)
  Sender: FDA-Public Use
  Company Number: JP-MSNLABS-2022MSNLIT00189

PATIENT

DRUGS (3)
  1. ERLOTINIB [Suspect]
     Active Substance: ERLOTINIB
     Indication: Non-small cell lung cancer
     Route: 065
  2. ERLOTINIB [Suspect]
     Active Substance: ERLOTINIB
     Indication: EGFR gene mutation
  3. RAMUCIRUMAB [Suspect]
     Active Substance: RAMUCIRUMAB
     Indication: Product used for unknown indication
     Route: 065

REACTIONS (8)
  - Somatic symptom disorder [Recovered/Resolved]
  - Somatic symptom disorder [None]
  - Dermatitis acneiform [None]
  - Rash [None]
  - Rash [None]
  - Culture positive [None]
  - Staphylococcal infection [None]
  - Rash [None]
